FAERS Safety Report 9686110 (Version 1)
Quarter: 2013Q4

REPORT INFORMATION
  Report Type: Report from Study
  Country: AR (occurrence: AR)
  Receive Date: 20131113
  Receipt Date: 20131113
  Transmission Date: 20140711
  Serious: Yes (Hospitalization, Other)
  Sender: FDA-Public Use
  Company Number: PHHY2013AR129125

PATIENT
  Sex: Female

DRUGS (1)
  1. EXFORGE [Suspect]
     Dosage: UNK DF(320/10MG), UNK

REACTIONS (2)
  - Bacterial infection [Not Recovered/Not Resolved]
  - Pyrexia [Recovered/Resolved]
